FAERS Safety Report 20005294 (Version 2)
Quarter: 2021Q4

REPORT INFORMATION
  Report Type: Report from Study
  Country: CA (occurrence: CA)
  Receive Date: 20211027
  Receipt Date: 20211227
  Transmission Date: 20220303
  Serious: Yes (Life-Threatening)
  Sender: FDA-Public Use
  Company Number: CA-BIOGEN-2021BI01061924

PATIENT
  Sex: Male

DRUGS (1)
  1. TYSABRI [Suspect]
     Active Substance: NATALIZUMAB
     Indication: Multiple sclerosis
     Route: 065
     Dates: start: 20200624

REACTIONS (4)
  - General physical health deterioration [Unknown]
  - Feeling of despair [Unknown]
  - Gait inability [Unknown]
  - Dysgraphia [Unknown]
